FAERS Safety Report 5506689-8 (Version None)
Quarter: 2007Q4

REPORT INFORMATION
  Report Type: 
  Country: None (occurrence: None)
  Receive Date: 20071105
  Receipt Date: 20071102
  Transmission Date: 20080405
  Serious: Yes (Life-Threatening, Other)
  Sender: FDA-Public Use
  Company Number: US-ASTRAZENECA-2007UW22980

PATIENT
  Age: 29854 Day
  Sex: Male
  Weight: 95.3 kg

DRUGS (6)
  1. RHINOCORT [Suspect]
     Indication: RHINITIS
     Dosage: ONE SPRAY EACH NOSTRIL
     Route: 045
     Dates: start: 20070809, end: 20071002
  2. ASPIRIN [Concomitant]
     Dates: start: 20071001, end: 20071002
  3. BENADRYL [Concomitant]
     Dosage: 100-150 MG
     Route: 048
  4. ARICEPT [Concomitant]
     Route: 048
     Dates: start: 20040401
  5. ZANTAC [Concomitant]
     Route: 048
  6. NAPROXEN [Concomitant]

REACTIONS (5)
  - ANAPHYLACTOID REACTION [None]
  - DYSPHONIA [None]
  - LIP SWELLING [None]
  - PHARYNGEAL OEDEMA [None]
  - SWOLLEN TONGUE [None]
